FAERS Safety Report 19948740 (Version 3)
Quarter: 2022Q1

REPORT INFORMATION
  Report Type: Spontaneous
  Country: US (occurrence: US)
  Receive Date: 20211012
  Receipt Date: 20220207
  Transmission Date: 20220424
  Serious: No
  Sender: FDA-Public Use
  Company Number: US-SA-SAC20211008000042

PATIENT
  Age: 64 Year
  Sex: Male

DRUGS (3)
  1. AUBAGIO [Suspect]
     Active Substance: TERIFLUNOMIDE
     Indication: Multiple sclerosis
     Dosage: 14 MG, QD
     Route: 048
     Dates: start: 20211001
  2. VIVITROL [Concomitant]
     Active Substance: NALTREXONE
     Dosage: UNK
  3. GILENYA [Concomitant]
     Active Substance: FINGOLIMOD HYDROCHLORIDE
     Dosage: UNK

REACTIONS (3)
  - Hepatic enzyme increased [Unknown]
  - Nausea [Unknown]
  - Sleep disorder [Unknown]

NARRATIVE: CASE EVENT DATE: 20211004
